FAERS Safety Report 25090269 (Version 2)
Quarter: 2025Q1

REPORT INFORMATION
  Report Type: Spontaneous
  Country: IT (occurrence: IT)
  Receive Date: 20250318
  Receipt Date: 20250327
  Transmission Date: 20250409
  Serious: Yes (Disabling, Other)
  Sender: ALKEM
  Company Number: None

PATIENT
  Age: 40 Year
  Sex: Female

DRUGS (1)
  1. CEFUROXIME AXETIL [Suspect]
     Active Substance: CEFUROXIME AXETIL
     Indication: Product used for unknown indication

REACTIONS (1)
  - Retinopathy [Recovering/Resolving]
